FAERS Safety Report 23933610 (Version 1)
Quarter: 2024Q2

REPORT INFORMATION
  Report Type: Spontaneous
  Country: US (occurrence: None)
  Receive Date: 20240602
  Receipt Date: 20240602
  Transmission Date: 20240716
  Serious: Yes (Other)
  Sender: FDA-Public Use
  Company Number: None

PATIENT
  Age: 39 Year
  Sex: Female
  Weight: 50.85 kg

DRUGS (6)
  1. PROGESTERONE [Suspect]
     Active Substance: PROGESTERONE
     Indication: Infertility female
     Dosage: OTHER QUANTITY : 1 CAPSULE(S)?FREQUENCY : AT BEDTIME?
     Route: 048
     Dates: start: 20240523, end: 20240531
  2. ESTRADIOL [Concomitant]
     Active Substance: ESTRADIOL
  3. DOXYCYCLINE [Concomitant]
     Active Substance: DOXYCYCLINE\DOXYCYCLINE HYCLATE
  4. Garden of Life organic prenatal gummies [Concomitant]
  5. Cunol Ubiquinol [Concomitant]
  6. melatonin gummy with zinc and vitamin c [Concomitant]

REACTIONS (8)
  - Abdominal pain [None]
  - Migraine [None]
  - Insomnia [None]
  - Somnolence [None]
  - Vomiting projectile [None]
  - Hyperhidrosis [None]
  - Nausea [None]
  - Therapy cessation [None]

NARRATIVE: CASE EVENT DATE: 20240530
